FAERS Safety Report 9315660 (Version 1)
Quarter: 2013Q2

REPORT INFORMATION
  Report Type: Spontaneous
  Country: DK (occurrence: CH)
  Receive Date: 20130529
  Receipt Date: 20130529
  Transmission Date: 20140414
  Serious: Yes (Other)
  Sender: FDA-Public Use
  Company Number: CH-FRI-1000045444

PATIENT
  Sex: Female

DRUGS (8)
  1. ESCITALOPRAM [Suspect]
     Indication: DEPRESSION
     Route: 048
     Dates: start: 201211, end: 20130419
  2. CYMBALTA [Suspect]
     Indication: BIPOLAR DISORDER
     Dosage: 60 MG
     Route: 048
     Dates: start: 20130422, end: 20130502
  3. CYMBALTA [Suspect]
     Indication: DEPRESSION
  4. TRAMAL [Suspect]
     Indication: BACK PAIN
     Dosage: 75 MG
     Route: 048
     Dates: start: 20130422, end: 20130424
  5. SALAZOPYRIN [Concomitant]
     Indication: ANKYLOSING SPONDYLITIS
     Dosage: 1500 MG
     Route: 048
  6. DAFALGAN [Concomitant]
     Indication: PAIN
     Dosage: 4000 MG
     Route: 048
     Dates: start: 20130422
  7. TILUR [Concomitant]
     Indication: BACK PAIN
     Dosage: 180 MG
     Route: 048
     Dates: start: 20130422
  8. ESOMEPRAZOLE [Concomitant]
     Indication: PROPHYLAXIS
     Dosage: 20 MG
     Route: 048
     Dates: start: 20130422

REACTIONS (3)
  - Sleep disorder [Recovering/Resolving]
  - Dry mouth [Recovering/Resolving]
  - Restless legs syndrome [Recovering/Resolving]
